FAERS Safety Report 7331634-2 (Version None)
Quarter: 2011Q1

REPORT INFORMATION
  Report Type: 
  Country: None (occurrence: None)
  Receive Date: 20110304
  Receipt Date: 20110222
  Transmission Date: 20110831
  Serious: Yes (Hospitalization, Other)
  Sender: FDA-Public Use
  Company Number: JP-BAYER-200811628BYL

PATIENT
  Sex: Male
  Weight: 55.4 kg

DRUGS (14)
  1. AMOBAN [Concomitant]
     Indication: INSOMNIA
     Route: 048
     Dates: start: 20080720, end: 20080720
  2. NEXAVAR [Suspect]
     Route: 048
     Dates: start: 20080816, end: 20090115
  3. VALTREX [Concomitant]
     Indication: PRODUCT USED FOR UNKNOWN INDICATION
     Dosage: 3000 MG (DAILY DOSE), , ORAL
     Route: 048
     Dates: start: 20080702, end: 20080707
  4. SELBEX [Concomitant]
     Indication: PRODUCT USED FOR UNKNOWN INDICATION
     Dosage: 150 MG (DAILY DOSE), , ORAL
     Route: 048
     Dates: start: 20080702
  5. LENDORMIN [Concomitant]
     Indication: INSOMNIA
     Dosage: 0.25 MG (DAILY DOSE), , ORAL
     Route: 048
     Dates: start: 20080719, end: 20080719
  6. NEXAVAR [Suspect]
     Indication: RENAL CELL CARCINOMA
     Dosage: 800 MG (DAILY DOSE), , ORAL
     Route: 048
     Dates: start: 20080701, end: 20080716
  7. LOXONIN [Concomitant]
     Indication: PRODUCT USED FOR UNKNOWN INDICATION
     Dosage: 180 MG (DAILY DOSE), , ORAL
     Route: 048
     Dates: start: 20080702
  8. MAGMITT [Concomitant]
     Indication: CONSTIPATION
     Dosage: 750 MG (DAILY DOSE), , ORAL
     Route: 048
     Dates: start: 20080723
  9. OXYCONTIN [Concomitant]
     Indication: CANCER PAIN
     Dosage: 10 MG (DAILY DOSE), , ORAL
     Route: 048
     Dates: start: 20080723
  10. GASTER D [Concomitant]
     Indication: PRODUCT USED FOR UNKNOWN INDICATION
     Dosage: 40 MG (DAILY DOSE), , ORAL
     Route: 048
     Dates: start: 20080630
  11. NEXAVAR [Suspect]
     Dosage: 400 MG (DAILY DOSE), , ORAL
     Route: 048
     Dates: start: 20080724, end: 20080805
  12. ALLEGRA [Concomitant]
     Indication: PRODUCT USED FOR UNKNOWN INDICATION
     Dosage: 120 MG (DAILY DOSE), , ORAL
     Route: 048
     Dates: start: 20080630, end: 20080710
  13. FERRUM [Concomitant]
     Indication: PRODUCT USED FOR UNKNOWN INDICATION
     Dosage: 305 MG (DAILY DOSE), , ORAL
     Route: 048
     Dates: start: 20080701
  14. NOVAMIN [Concomitant]
     Indication: NAUSEA
     Dosage: 15 MG (DAILY DOSE), , ORAL
     Route: 048
     Dates: start: 20080723

REACTIONS (9)
  - NEUTROPHIL COUNT DECREASED [None]
  - DIARRHOEA [None]
  - TRI-IODOTHYRONINE DECREASED [None]
  - FEBRILE NEUTROPENIA [None]
  - ACTIVATED PARTIAL THROMBOPLASTIN TIME PROLONGED [None]
  - ANAEMIA [None]
  - PROTHROMBIN TIME PROLONGED [None]
  - BLOOD THYROID STIMULATING HORMONE INCREASED [None]
  - PROTEIN URINE PRESENT [None]
